FAERS Safety Report 13515979 (Version 1)
Quarter: 2017Q2

REPORT INFORMATION
  Report Type: Spontaneous
  Country: CA (occurrence: CA)
  Receive Date: 20170505
  Receipt Date: 20170505
  Transmission Date: 20170830
  Serious: Yes (Other)
  Sender: FDA-Public Use
  Company Number: CA-TEVA-765203ACC

PATIENT
  Age: 87 Year
  Sex: Female

DRUGS (3)
  1. WARFARIN [Suspect]
     Active Substance: WARFARIN
     Indication: PRODUCT USED FOR UNKNOWN INDICATION
     Route: 065
  2. TAMIFLU [Interacting]
     Active Substance: OSELTAMIVIR PHOSPHATE
     Indication: INFLUENZA
     Dosage: 75 MILLIGRAM DAILY;
     Route: 048
  3. TAMIFLU [Interacting]
     Active Substance: OSELTAMIVIR PHOSPHATE
     Dosage: 30 MILLIGRAM DAILY;
     Route: 048

REACTIONS (2)
  - Drug interaction [Unknown]
  - International normalised ratio increased [Unknown]
